FAERS Safety Report 16132470 (Version 1)
Quarter: 2019Q1

REPORT INFORMATION
  Report Type: Spontaneous
  Country: LT (occurrence: LT)
  Receive Date: 20190329
  Receipt Date: 20190329
  Transmission Date: 20190418
  Serious: Yes (Hospitalization, Other)
  Sender: FDA-Public Use
  Company Number: LT-STRIDES ARCOLAB LIMITED-2019SP002649

PATIENT
  Sex: Female
  Weight: .59 kg

DRUGS (8)
  1. DEXAMETHASONE. [Suspect]
     Active Substance: DEXAMETHASONE
     Indication: PRODUCT USED FOR UNKNOWN INDICATION
     Dosage: UNK
     Route: 065
  2. GENTAMICIN. [Suspect]
     Active Substance: GENTAMICIN
     Indication: ANTIBIOTIC THERAPY
     Dosage: UNK
     Route: 065
  3. CAPTOPRIL. [Suspect]
     Active Substance: CAPTOPRIL
     Indication: HYPERTENSION
     Dosage: 4 DF, TOTAL
     Route: 065
  4. PENICILLIN                         /00000901/ [Concomitant]
     Active Substance: PENICILLIN G
     Indication: ANTIBIOTIC THERAPY
     Dosage: UNK
     Route: 065
  5. CEFOTAXIME [Concomitant]
     Active Substance: CEFOTAXIME SODIUM
     Indication: ANTIBIOTIC THERAPY
     Dosage: UNK
     Route: 065
  6. IBUPROFEN. [Suspect]
     Active Substance: IBUPROFEN
     Indication: PATENT DUCTUS ARTERIOSUS
     Dosage: UNK
     Route: 042
  7. CEFUROXIME. [Concomitant]
     Active Substance: CEFUROXIME
     Indication: ANTIBIOTIC THERAPY
     Dosage: UNK
     Route: 065
  8. VITAMIN D                          /00107901/ [Concomitant]
     Active Substance: ERGOCALCIFEROL
     Indication: ANTIBIOTIC THERAPY
     Dosage: 400 IU PER DAY
     Route: 065

REACTIONS (10)
  - Sepsis [Unknown]
  - Pyrexia [Recovered/Resolved]
  - Nephrolithiasis [Not Recovered/Not Resolved]
  - Oliguria [Recovered/Resolved]
  - Polyuria [Recovered/Resolved]
  - Hyperkalaemia [Unknown]
  - Off label use [Unknown]
  - Nephrocalcinosis [Unknown]
  - Oedema peripheral [Recovered/Resolved]
  - Acute kidney injury [Recovered/Resolved]
